FAERS Safety Report 10433795 (Version 1)
Quarter: 2014Q3

REPORT INFORMATION
  Report Type: Spontaneous
  Country: FR (occurrence: FR)
  Receive Date: 20140905
  Receipt Date: 20140905
  Transmission Date: 20150326
  Serious: Yes (Life-Threatening, Hospitalization)
  Sender: FDA-Public Use
  Company Number: FR-BRISTOL-MYERS SQUIBB COMPANY-21362777

PATIENT
  Age: 83 Year
  Sex: Female

DRUGS (10)
  1. EBASTINE [Concomitant]
     Active Substance: EBASTINE
  2. MUPIDERM [Concomitant]
     Active Substance: MUPIROCIN
  3. FLECAINE [Concomitant]
     Active Substance: FLECAINIDE
  4. FUROSEMIDE. [Concomitant]
     Active Substance: FUROSEMIDE
  5. EUPRESSYL [Concomitant]
     Active Substance: URAPIDIL
  6. HYPERIUM [Concomitant]
     Active Substance: RILMENIDINE PHOSPHATE
  7. COLECALCIFEROL [Concomitant]
     Active Substance: CHOLECALCIFEROL
  8. AMIODARONE [Concomitant]
     Active Substance: AMIODARONE
  9. ELIQUIS [Suspect]
     Active Substance: APIXABAN
     Indication: CEREBROVASCULAR ACCIDENT PROPHYLAXIS
     Route: 048
     Dates: start: 201406, end: 20140727
  10. APROVEL [Concomitant]
     Active Substance: IRBESARTAN

REACTIONS (2)
  - Fall [Recovering/Resolving]
  - Haemorrhagic stroke [Recovering/Resolving]

NARRATIVE: CASE EVENT DATE: 20140724
